FAERS Safety Report 17946373 (Version 7)
Quarter: 2020Q3

REPORT INFORMATION
  Report Type: Spontaneous
  Country: DE (occurrence: DE)
  Receive Date: 20200625
  Receipt Date: 20200918
  Transmission Date: 20201103
  Serious: Yes (Hospitalization, Other)
  Sender: FDA-Public Use
  Company Number: NVSC2020DE175239

PATIENT
  Age: 59 Year
  Sex: Female

DRUGS (22)
  1. METFORMIN HYDROCHLORIDE. [Suspect]
     Active Substance: METFORMIN HYDROCHLORIDE
     Indication: PRODUCT USED FOR UNKNOWN INDICATION
     Dosage: 850 MG, QD (DATE AND TIME OF LAST ADMINISTRATION 19 SEP 2019)
     Route: 048
     Dates: start: 20190830
  2. XARELTO [Suspect]
     Active Substance: RIVAROXABAN
     Indication: PROPHYLAXIS
     Dosage: 20 MG, QD
     Route: 048
     Dates: start: 20190409, end: 20190429
  3. AMPHO?MORONAL [Suspect]
     Active Substance: AMPHOTERICIN B
     Indication: PROPHYLAXIS
     Dosage: UNK UNK, QID
     Route: 048
     Dates: start: 20190108, end: 20190409
  4. MOZOBIL [Suspect]
     Active Substance: PLERIXAFOR
     Indication: PLASMA CELL MYELOMA
     Dosage: 0.24 MG/KG, QD
     Route: 058
     Dates: start: 20190507, end: 20190507
  5. ACICLOVIR [Suspect]
     Active Substance: ACYCLOVIR
     Indication: PROPHYLAXIS
     Dosage: 400 MG, TID (ONCE IN 8 HOURS)
     Route: 048
     Dates: start: 20190108
  6. COTRIMOXAZOLE [Suspect]
     Active Substance: SULFAMETHOXAZOLE\TRIMETHOPRIM
     Indication: PROPHYLAXIS
  7. PANTOZOL [Suspect]
     Active Substance: PANTOPRAZOLE SODIUM
     Indication: PROPHYLAXIS
     Dosage: 40 MG, QD
     Route: 048
     Dates: start: 20190117
  8. CLINDAMYCIN. [Concomitant]
     Active Substance: CLINDAMYCIN
     Indication: PROPHYLAXIS
     Dosage: 300 MG, FOUR TIMES DAILY (ONCE IN 6 HOURS)
     Route: 048
     Dates: start: 20190117, end: 20190123
  9. TORASEMIDE [Suspect]
     Active Substance: TORSEMIDE
     Indication: PRODUCT USED FOR UNKNOWN INDICATION
     Dosage: 5 MG, QD
     Route: 048
     Dates: start: 20190830
  10. PLERIXAFOR [Suspect]
     Active Substance: PLERIXAFOR
     Indication: PLASMA CELL MYELOMA
     Dosage: UNK UNK, QD
     Route: 058
     Dates: start: 20190505
  11. MOZOBIL [Suspect]
     Active Substance: PLERIXAFOR
     Dosage: 0.18 MG/KG, QD
     Route: 058
     Dates: start: 20190507, end: 20190507
  12. COTRIMOXAZOLE [Suspect]
     Active Substance: SULFAMETHOXAZOLE\TRIMETHOPRIM
     Indication: PRODUCT USED FOR UNKNOWN INDICATION
     Dosage: 960 MG, TIW(THREE TIMES A WEEK)
     Route: 048
     Dates: start: 20190108
  13. ALLOPURINOL. [Concomitant]
     Active Substance: ALLOPURINOL
     Indication: PRODUCT USED FOR UNKNOWN INDICATION
     Dosage: 300 MG, QD
     Route: 048
     Dates: start: 20190117, end: 20190419
  14. AMOCLAV [Concomitant]
     Active Substance: AMOXICILLIN\CLAVULANATE POTASSIUM
     Indication: PROPHYLAXIS
     Dosage: 250 MG, QD (125 MG, BID (ONCE IN 12 HOURS))
     Route: 065
     Dates: start: 20190409, end: 20190414
  15. PANTOPRAZOLE [Suspect]
     Active Substance: PANTOPRAZOLE
     Indication: PROPHYLAXIS
     Dosage: 40 MG, QD
     Route: 048
     Dates: start: 20190117
  16. PLERIXAFOR [Suspect]
     Active Substance: PLERIXAFOR
     Dosage: 0.24 MG/KG, QD
     Route: 058
     Dates: start: 20190507, end: 20190507
  17. PLERIXAFOR [Suspect]
     Active Substance: PLERIXAFOR
     Dosage: 0.18 MG/KG, QD
     Route: 058
     Dates: start: 20190507, end: 20190507
  18. TILIDIN  ? 1 A PHARMA [Suspect]
     Active Substance: NALOXONE HYDROCHLORIDE\TILIDINE HYDROCHLORIDE
     Indication: PRODUCT USED FOR UNKNOWN INDICATION
     Dosage: 16 MG, BID (8 MG, Q12H)
     Route: 048
     Dates: start: 20190830
  19. RIVAROXABAN [Suspect]
     Active Substance: RIVAROXABAN
     Indication: PROPHYLAXIS
     Dosage: 20 MG, QD
     Route: 048
     Dates: start: 20190409, end: 20190429
  20. DELIX [RAMIPRIL] [Suspect]
     Active Substance: RAMIPRIL
     Indication: PRODUCT USED FOR UNKNOWN INDICATION
     Dosage: 5 MG, QD
     Route: 048
     Dates: start: 20190117
  21. AMPHO?MORONAL [Suspect]
     Active Substance: AMPHOTERICIN B
     Dosage: UNK UNK, QID
     Route: 048
     Dates: start: 20190830
  22. JANUMET [Concomitant]
     Active Substance: METFORMIN HYDROCHLORIDE\SITAGLIPTIN PHOSPHATE
     Indication: PRODUCT USED FOR UNKNOWN INDICATION
     Dosage: 1000 MG, BID (ONCE IN 12 HOURS)
     Route: 048
     Dates: start: 20190117, end: 20190419

REACTIONS (2)
  - Febrile neutropenia [Recovered/Resolved]
  - Escherichia infection [Recovered/Resolved]

NARRATIVE: CASE EVENT DATE: 20190603
